FAERS Safety Report 6488780-5 (Version None)
Quarter: 2009Q4

REPORT INFORMATION
  Report Type: 
  Country: None (occurrence: None)
  Receive Date: 20091210
  Receipt Date: 20091020
  Transmission Date: 20100525
  Serious: No
  Sender: FDA-Public Use
  Company Number: US-AMGEN-KDL364498

PATIENT
  Sex: Male
  Weight: 77.2 kg

DRUGS (1)
  1. ENBREL [Suspect]
     Indication: ANKYLOSING SPONDYLITIS
     Route: 058
     Dates: start: 20061201

REACTIONS (3)
  - ABSCESS LIMB [None]
  - IMPAIRED HEALING [None]
  - INGROWN HAIR [None]
